FAERS Safety Report 11678834 (Version 1)
Quarter: 2015Q4

REPORT INFORMATION
  Report Type: Spontaneous
  Country: US (occurrence: US)
  Receive Date: 20151027
  Receipt Date: 20151027
  Transmission Date: 20160304
  Serious: No
  Sender: FDA-Public Use
  Company Number: US-ELI_LILLY_AND_COMPANY-US201011000451

PATIENT
  Age: 67 Year
  Sex: Female

DRUGS (9)
  1. CELEXA [Concomitant]
     Active Substance: CITALOPRAM HYDROBROMIDE
  2. VITAMIN D [Concomitant]
     Active Substance: CHOLECALCIFEROL
  3. LOTREL [Concomitant]
     Active Substance: AMLODIPINE BESYLATE\BENAZEPRIL HYDROCHLORIDE
  4. ZOCOR [Concomitant]
     Active Substance: SIMVASTATIN
  5. NEURONTIN [Concomitant]
     Active Substance: GABAPENTIN
  6. CALCIUM [Concomitant]
     Active Substance: CALCIUM
  7. FORTEO [Suspect]
     Active Substance: TERIPARATIDE
     Indication: OSTEOPOROSIS
     Dosage: 20 UG, DAILY (1/D)
     Dates: start: 20101014
  8. HYZAAR [Concomitant]
     Active Substance: HYDROCHLOROTHIAZIDE\LOSARTAN POTASSIUM
  9. BYSTOLIC [Concomitant]
     Active Substance: NEBIVOLOL HYDROCHLORIDE

REACTIONS (8)
  - Arthralgia [Unknown]
  - Bone disorder [Unknown]
  - Pain [Unknown]
  - Fall [Unknown]
  - Dyspnoea [Unknown]
  - Gait disturbance [Unknown]
  - Pain in extremity [Unknown]
  - Pain [Recovered/Resolved]

NARRATIVE: CASE EVENT DATE: 201010
